FAERS Safety Report 10214721 (Version 3)
Quarter: 2014Q4

REPORT INFORMATION
  Report Type: Spontaneous
  Country: BR (occurrence: BR)
  Receive Date: 20140603
  Receipt Date: 20141114
  Transmission Date: 20150528
  Serious: Yes (Hospitalization, Other)
  Sender: FDA-Public Use
  Company Number: BR-ROCHE-1408921

PATIENT
  Age: 72 Year
  Sex: Male
  Weight: 71.8 kg

DRUGS (4)
  1. CARBOPLATIN. [Concomitant]
     Active Substance: CARBOPLATIN
  2. AVASTIN [Suspect]
     Active Substance: BEVACIZUMAB
     Route: 042
     Dates: start: 20140619
  3. AVASTIN [Suspect]
     Active Substance: BEVACIZUMAB
     Indication: NON-SMALL CELL LUNG CANCER
     Route: 042
     Dates: start: 20140416, end: 20140417
  4. ALIMTA [Concomitant]
     Active Substance: PEMETREXED DISODIUM

REACTIONS (9)
  - Pleural effusion [Recovered/Resolved]
  - C-reactive protein increased [Recovered/Resolved]
  - Rash generalised [Recovered/Resolved]
  - Cystitis [Recovered/Resolved]
  - Ill-defined disorder [Recovered/Resolved]
  - Abdominal pain [Recovered/Resolved]
  - Asthenia [Recovered/Resolved]
  - Cholecystitis infective [Recovered/Resolved]
  - Tremor [Recovered/Resolved]

NARRATIVE: CASE EVENT DATE: 20140417
